FAERS Safety Report 15219463 (Version 1)
Quarter: 2018Q3

REPORT INFORMATION
  Report Type: Spontaneous
  Country: IL (occurrence: IL)
  Receive Date: 20180731
  Receipt Date: 20180731
  Transmission Date: 20181010
  Serious: Yes (Hospitalization, Other)
  Sender: FDA-Public Use
  Company Number: IL-ROCHE-2161664

PATIENT

DRUGS (1)
  1. AVASTIN [Suspect]
     Active Substance: BEVACIZUMAB
     Indication: RETINAL DISORDER
     Route: 031
     Dates: start: 20160127, end: 20160129

REACTIONS (6)
  - Blindness [Unknown]
  - Off label use [Unknown]
  - Eye infection [Unknown]
  - Visual impairment [Unknown]
  - Suspected transmission of an infectious agent via product [Unknown]
  - Intentional product use issue [Unknown]
